FAERS Safety Report 22629619 (Version 8)
Quarter: 2025Q2

REPORT INFORMATION
  Report Type: Spontaneous
  Country: JP (occurrence: JP)
  Receive Date: 20230622
  Receipt Date: 20250606
  Transmission Date: 20250717
  Serious: Yes (Death, Life-Threatening, Hospitalization)
  Sender: JOHNSON AND JOHNSON
  Company Number: JP-JNJFOC-20230637669

PATIENT
  Age: 80 Year
  Sex: Male
  Weight: 56.0 kg

DRUGS (2)
  1. ZYTIGA [Suspect]
     Active Substance: ABIRATERONE ACETATE
     Indication: Hormone-refractory prostate cancer
     Route: 048
     Dates: start: 20230822
  2. ERLEADA [Suspect]
     Active Substance: APALUTAMIDE
     Indication: Hormone-refractory prostate cancer
     Route: 048
     Dates: start: 20230522, end: 20230614

REACTIONS (4)
  - Sepsis [Fatal]
  - Stevens-Johnson syndrome [Recovering/Resolving]
  - Urinary tract infection [Unknown]
  - Prostate cancer [Unknown]

NARRATIVE: CASE EVENT DATE: 20230101
